FAERS Safety Report 26083858 (Version 2)
Quarter: 2025Q4

REPORT INFORMATION
  Report Type: Spontaneous
  Country: JP (occurrence: JP)
  Receive Date: 20251124
  Receipt Date: 20251210
  Transmission Date: 20260117
  Serious: No
  Sender: ABBVIE
  Company Number: JP-ABBVIE-6559668

PATIENT
  Age: 60 Year
  Sex: Female

DRUGS (1)
  1. SKYRIZI [Suspect]
     Active Substance: RISANKIZUMAB-RZAA
     Indication: Psoriasis
     Dosage: FORM STRENGTH 150 MG?SOLUTION FOR INJECTION IN PRE-FILLED SYRINGE
     Route: 058

REACTIONS (2)
  - Investigation abnormal [Unknown]
  - Cough [Unknown]

NARRATIVE: CASE EVENT DATE: 20251120
